FAERS Safety Report 7810842-8 (Version None)
Quarter: 2011Q4

REPORT INFORMATION
  Report Type: 
  Country: None (occurrence: None)
  Receive Date: 20111011
  Receipt Date: 20110927
  Transmission Date: 20120403
  Serious: Yes (Other)
  Sender: FDA-Public Use
  Company Number: TPA2011A05310

PATIENT
  Age: 63 Year
  Sex: Female

DRUGS (11)
  1. NABUMETONE [Concomitant]
  2. COLCHICINE [Concomitant]
  3. FUROSEMIDE [Concomitant]
  4. ADENURIC (FEBUXOSTAT) [Suspect]
     Indication: GOUT
     Dosage: ORAL
     Route: 048
     Dates: start: 20101220, end: 20110201
  5. OMEPRAZOLE [Concomitant]
  6. BUDESONIDE [Concomitant]
  7. CANDESARTAN CILEXETIL [Concomitant]
  8. ENALAPRIL MALEATE [Concomitant]
  9. DOXAZOSIN MESYLATE [Concomitant]
  10. HYDROMORPHONE HCL [Concomitant]
  11. TERBUTALINE SULFATE [Concomitant]

REACTIONS (2)
  - RENAL IMPAIRMENT [None]
  - SKIN REACTION [None]
